FAERS Safety Report 9669039 (Version 2)
Quarter: 2013Q4

REPORT INFORMATION
  Report Type: Spontaneous
  Country: US (occurrence: US)
  Receive Date: 20131105
  Receipt Date: 20131125
  Transmission Date: 20140711
  Serious: No
  Sender: FDA-Public Use
  Company Number: US-PFIZER INC-2013314059

PATIENT
  Age: 58 Year
  Sex: Female

DRUGS (8)
  1. XELJANZ [Suspect]
     Indication: RHEUMATOID ARTHRITIS
     Dosage: 5 MG, 2X/DAY
     Route: 048
     Dates: start: 20131016, end: 20131108
  2. XELJANZ [Suspect]
     Indication: HEADACHE
  3. PREDNISONE [Concomitant]
     Dosage: 5 MG, DAILY
  4. LANTUS SOLOSTAR [Concomitant]
     Dosage: 100 UNITS/ML
  5. METFORMIN HYDROCHLORIDE [Concomitant]
     Dosage: 1000 MG, UNK
  6. LISINOPRIL [Concomitant]
     Dosage: 20 MG, UNK
  7. DIAZEPAM [Concomitant]
     Dosage: 5 MG, UNK
  8. SULFASALAZINE [Concomitant]
     Dosage: 3000 MG, DAILY

REACTIONS (2)
  - Off label use [Unknown]
  - Headache [Recovered/Resolved]
